FAERS Safety Report 14423632 (Version 2)
Quarter: 2018Q1

REPORT INFORMATION
  Report Type: Spontaneous
  Country: US (occurrence: US)
  Receive Date: 20180123
  Receipt Date: 20180223
  Transmission Date: 20180509
  Serious: No
  Sender: FDA-Public Use
  Company Number: US-PFIZER INC-2018030290

PATIENT
  Age: 50 Year
  Weight: 80 kg

DRUGS (3)
  1. GENOTROPIN MQ [Suspect]
     Active Substance: SOMATROPIN
     Indication: GROWTH HORMONE DEFICIENCY
     Dosage: 0.6 MG, DAILY
  2. GENOTROPIN MQ [Suspect]
     Active Substance: SOMATROPIN
     Indication: HYPOPITUITARISM
  3. HYDROCORTISONE. [Concomitant]
     Active Substance: HYDROCORTISONE
     Dosage: 25 MG, 1X/DAY (IN THE EARLY AM, NO PM DOSE)

REACTIONS (11)
  - Headache [Unknown]
  - Insomnia [Unknown]
  - Arthralgia [Unknown]
  - Asthenia [Unknown]
  - Hypoacusis [Unknown]
  - Ear pain [Unknown]
  - Fatigue [Unknown]
  - Temperature intolerance [Unknown]
  - Tinnitus [Unknown]
  - Disturbance in attention [Unknown]
  - Joint swelling [Unknown]
